FAERS Safety Report 13385618 (Version 1)
Quarter: 2017Q1

REPORT INFORMATION
  Report Type: Spontaneous
  Country: CN (occurrence: CN)
  Receive Date: 20170330
  Receipt Date: 20170330
  Transmission Date: 20170429
  Serious: Yes (Death, Other)
  Sender: FDA-Public Use
  Company Number: CN-FRESENIUS KABI-FK201702635

PATIENT
  Age: 28 Year
  Sex: Male

DRUGS (12)
  1. CYTARABINE (MANUFACTURER UNKNOWN) [Suspect]
     Active Substance: CYTARABINE
     Indication: NON-HODGKIN^S LYMPHOMA
     Route: 065
  2. PREDNISONE. [Suspect]
     Active Substance: PREDNISONE
     Indication: NON-HODGKIN^S LYMPHOMA
     Route: 065
  3. ETOPOSIDE (MANUFACTURER UNKNOWN) [Suspect]
     Active Substance: ETOPOSIDE
     Indication: NON-HODGKIN^S LYMPHOMA
     Route: 065
  4. DEXAMETHASONE INJECTION (MANUFACTURER UNKNOWN) [Suspect]
     Active Substance: DEXAMETHASONE
     Indication: NON-HODGKIN^S LYMPHOMA
     Route: 065
  5. VINCRISTINE [Suspect]
     Active Substance: VINCRISTINE
     Indication: NON-HODGKIN^S LYMPHOMA
     Route: 065
  6. ZIDOVUDINE. [Suspect]
     Active Substance: ZIDOVUDINE
     Indication: NON-HODGKIN^S LYMPHOMA
     Route: 065
  7. RITUXIMAB [Suspect]
     Active Substance: RITUXIMAB
     Indication: NON-HODGKIN^S LYMPHOMA
     Route: 065
  8. EFAVIRENZ [Suspect]
     Active Substance: EFAVIRENZ
     Indication: NON-HODGKIN^S LYMPHOMA
     Route: 065
  9. LAMIVUDINE. [Suspect]
     Active Substance: LAMIVUDINE
     Indication: NON-HODGKIN^S LYMPHOMA
     Route: 065
  10. METHOTREXATE (MANUFACTURER UNKNOWN) [Suspect]
     Active Substance: METHOTREXATE
     Indication: NON-HODGKIN^S LYMPHOMA
     Route: 065
  11. EPIRUBICIN (MANUFACTURER UNKNOWN) [Suspect]
     Active Substance: EPIRUBICIN
     Indication: NON-HODGKIN^S LYMPHOMA
     Route: 065
  12. CYCLOPHOSPHAMIDE. [Suspect]
     Active Substance: CYCLOPHOSPHAMIDE
     Indication: NON-HODGKIN^S LYMPHOMA
     Route: 065

REACTIONS (4)
  - Sepsis [Unknown]
  - Respiratory failure [Fatal]
  - Bone marrow failure [Unknown]
  - Gastrointestinal disorder [Unknown]
